FAERS Safety Report 7943672-7 (Version None)
Quarter: 2011Q4

REPORT INFORMATION
  Report Type: 
  Country: None (occurrence: None)
  Receive Date: 20111128
  Receipt Date: 20111115
  Transmission Date: 20120403
  Serious: Yes (Other)
  Sender: FDA-Public Use
  Company Number: BE-ASTRAZENECA-2010SE60345

PATIENT
  Age: 12209 Day
  Sex: Female
  Weight: 67 kg

DRUGS (4)
  1. OMNIBIONTA PRONATAL [Concomitant]
  2. OMEPRAZOLE [Concomitant]
  3. OMEPRAZOLE [Concomitant]
     Indication: ABDOMINAL DISCOMFORT
  4. NEXIUM [Suspect]
     Indication: GASTRIC PERFORATION
     Route: 048
     Dates: start: 20100701, end: 20101101

REACTIONS (3)
  - BREAST CANCER [None]
  - MATERNAL EXPOSURE DURING PREGNANCY [None]
  - DIZZINESS [None]
